FAERS Safety Report 17572674 (Version 1)
Quarter: 2020Q1

REPORT INFORMATION
  Report Type: Spontaneous
  Country: US (occurrence: US)
  Receive Date: 20200323
  Receipt Date: 20200323
  Transmission Date: 20200409
  Serious: No
  Sender: FDA-Public Use
  Company Number: US-SA-2020SA072518

PATIENT
  Age: 53 Year
  Sex: Female

DRUGS (1)
  1. AUBAGIO [Suspect]
     Active Substance: TERIFLUNOMIDE
     Dosage: 14 MG
     Dates: start: 2015

REACTIONS (3)
  - Neutrophil count decreased [Unknown]
  - Lymphocyte count decreased [Unknown]
  - White blood cell count decreased [Unknown]
